FAERS Safety Report 6578611-7 (Version None)
Quarter: 2010Q1

REPORT INFORMATION
  Report Type: 
  Country: None (occurrence: None)
  Receive Date: 20100211
  Receipt Date: 20100201
  Transmission Date: 20100710
  Serious: Yes (Death, Other)
  Sender: FDA-Public Use
  Company Number: JP-ABBOTT-10P-087-0625533-00

PATIENT
  Age: 79 Year
  Sex: Male

DRUGS (8)
  1. LEUPLIN SR FOR INJECTION 11.25 MG [Suspect]
     Indication: PROSTATE CANCER STAGE II
     Route: 058
     Dates: start: 20070703, end: 20090501
  2. FLIVAS [Concomitant]
     Indication: BENIGN PROSTATIC HYPERPLASIA
     Route: 048
     Dates: start: 20040210, end: 20070820
  3. FLIVAS [Concomitant]
     Route: 048
     Dates: start: 20070821
  4. BUP-4 [Concomitant]
     Indication: NEUROGENIC BLADDER
     Route: 048
     Dates: start: 20070501
  5. NORVASC [Concomitant]
     Indication: HYPERTENSION
     Route: 048
  6. DISOPYRAMIDE [Concomitant]
     Indication: ARRHYTHMIA
     Route: 048
  7. MAGMITT [Concomitant]
     Indication: CONSTIPATION
     Route: 048
     Dates: start: 20080911
  8. JUZENTAIHOTO [Concomitant]
     Indication: DECREASED APPETITE
     Route: 048
     Dates: start: 20081001, end: 20081105

REACTIONS (4)
  - BILE DUCT CANCER [None]
  - CHEST DISCOMFORT [None]
  - ECZEMA [None]
  - PANCREATITIS [None]
